FAERS Safety Report 8923474 (Version 1)
Quarter: 2012Q4

REPORT INFORMATION
  Report Type: Spontaneous
  Country: DK (occurrence: None)
  Receive Date: 20121114
  Receipt Date: 20121114
  Transmission Date: 20130627
  Serious: Yes (Death)
  Sender: FDA-Public Use
  Company Number: 2012MA013292

PATIENT
  Age: 82 Year
  Sex: Female

DRUGS (8)
  1. METFORMIN HYDROCHLORIDE [Suspect]
     Indication: DIABETES MELLITUS
     Route: 048
  2. SORBANGIL [Concomitant]
  3. BURINEX [Concomitant]
  4. SIMVASTATIN [Concomitant]
  5. LEVAXIN [Concomitant]
  6. EPINAT [Concomitant]
  7. ZYLORIC [Concomitant]
  8. RENITEC [Concomitant]

REACTIONS (11)
  - Lactic acidosis [None]
  - Toxicity to various agents [None]
  - Somnolence [None]
  - Hypotension [None]
  - Hypophagia [None]
  - Asthenia [None]
  - Malaise [None]
  - Vomiting [None]
  - Renal failure acute [None]
  - No therapeutic response [None]
  - Coma [None]
